FAERS Safety Report 7450274-8 (Version None)
Quarter: 2011Q2

REPORT INFORMATION
  Report Type: 
  Country: None (occurrence: None)
  Receive Date: 20110422
  Receipt Date: 20110407
  Transmission Date: 20111010
  Serious: Yes (Other)
  Sender: FDA-Public Use
  Company Number: AUR-APL-2011-01273

PATIENT
  Age: 48 Year
  Sex: Female
  Weight: 78 kg

DRUGS (9)
  1. ZOLOFT [Suspect]
     Indication: DEPRESSION
     Dosage: 25MG, DAILY;
     Dates: start: 20110201
  2. PHENYTOIN [Concomitant]
  3. MEDICINES FOR HYPERCHOLESTEROLEMIA AND OSTEOARTHRITIS [Concomitant]
  4. ZOLOFT [Suspect]
     Indication: DEPRESSION
     Dosage: 50 MG, DAILY,
     Dates: start: 20110113, end: 20110212
  5. PHENOBARBITAL TAB [Concomitant]
  6. AMITRIPTYLINE HCL [Suspect]
     Dosage: 25-75MG,
  7. PERPHENAZINE [Suspect]
     Dosage: 3MG, BID,
  8. PERPHENAZINE [Suspect]
     Dosage: 4 MG,
  9. SUMATRIPTAN SUCCINATE [Suspect]
     Indication: MIGRAINE
     Dates: start: 20110101

REACTIONS (14)
  - MYALGIA [None]
  - JOINT SWELLING [None]
  - LEUKOCYTOSIS [None]
  - SENSORY INTEGRATIVE DYSFUNCTION [None]
  - ERYTHEMA NODOSUM [None]
  - YERSINIA INFECTION [None]
  - BLOOD COUNT ABNORMAL [None]
  - HEPATIC ENZYME INCREASED [None]
  - NAUSEA [None]
  - SEROTONIN SYNDROME [None]
  - ARTHRALGIA [None]
  - DIARRHOEA [None]
  - RED BLOOD CELL SEDIMENTATION RATE INCREASED [None]
  - VOMITING [None]
